FAERS Safety Report 15905227 (Version 1)
Quarter: 2019Q1

REPORT INFORMATION
  Report Type: Spontaneous
  Country: US (occurrence: US)
  Receive Date: 20190204
  Receipt Date: 20190204
  Transmission Date: 20190417
  Serious: Yes (Other)
  Sender: FDA-Public Use
  Company Number: US-BAYER-2019-024108

PATIENT
  Age: 30 Year
  Sex: Female

DRUGS (1)
  1. MIRENA [Suspect]
     Active Substance: LEVONORGESTREL
     Dosage: 20 MCG/24HR, CONT
     Route: 015
     Dates: start: 2008

REACTIONS (7)
  - Visual impairment [None]
  - Tinnitus [None]
  - Papilloedema [None]
  - Headache [None]
  - Intracranial pressure increased [None]
  - Vision blurred [None]
  - Blindness transient [None]

NARRATIVE: CASE EVENT DATE: 2009
